FAERS Safety Report 15366011 (Version 4)
Quarter: 2021Q3

REPORT INFORMATION
  Report Type: Report from Study
  Country: US (occurrence: US)
  Receive Date: 20180910
  Receipt Date: 20210921
  Transmission Date: 20211014
  Serious: No
  Sender: FDA-Public Use
  Company Number: PHEH2018US036819

PATIENT
  Sex: Female

DRUGS (2)
  1. ENTRESTO [Suspect]
     Active Substance: SACUBITRIL\VALSARTAN
     Indication: CARDIOMYOPATHY
     Dosage: UNK
     Route: 065
  2. ENTRESTO [Suspect]
     Active Substance: SACUBITRIL\VALSARTAN
     Indication: EJECTION FRACTION ABNORMAL
     Route: 048

REACTIONS (8)
  - Nasopharyngitis [Unknown]
  - Sinus disorder [Unknown]
  - Hypersensitivity [Unknown]
  - Hip arthroplasty [Unknown]
  - Rhinorrhoea [Unknown]
  - Cough [Not Recovered/Not Resolved]
  - Product use in unapproved indication [Unknown]
  - Muscle spasms [Unknown]
